FAERS Safety Report 12067707 (Version 1)
Quarter: 2016Q1

REPORT INFORMATION
  Report Type: Spontaneous
  Country: IT (occurrence: IT)
  Receive Date: 20160211
  Receipt Date: 20160211
  Transmission Date: 20160526
  Serious: Yes (Other)
  Sender: FDA-Public Use
  Company Number: IT-ASTRAZENECA-2016SE12734

PATIENT
  Sex: Female

DRUGS (9)
  1. EXEMESTANE. [Concomitant]
     Active Substance: EXEMESTANE
  2. MACROGOL [Concomitant]
     Active Substance: POLYETHYLENE GLYCOLS
  3. FULVESTRANT [Suspect]
     Active Substance: FULVESTRANT
     Indication: CHEMOTHERAPY
     Route: 030
     Dates: start: 20130926, end: 20150123
  4. ZOLEDRONIC ACID [Concomitant]
     Active Substance: ZOLEDRONIC ACID
  5. ANASTROZOLE. [Concomitant]
     Active Substance: ANASTROZOLE
  6. TAMOXIFEN [Concomitant]
     Active Substance: TAMOXIFEN
  7. PACLITAXEL. [Concomitant]
     Active Substance: PACLITAXEL
  8. OXYCODONE [Concomitant]
     Active Substance: OXYCODONE
  9. LEVOSULPIRIDE [Concomitant]
     Active Substance: LEVOSULPIRIDE

REACTIONS (1)
  - Disease progression [Not Recovered/Not Resolved]
